FAERS Safety Report 7117841-2 (Version None)
Quarter: 2010Q4

REPORT INFORMATION
  Report Type: 
  Country: None (occurrence: None)
  Receive Date: 20101118
  Receipt Date: 20101118
  Transmission Date: 20110411
  Serious: Yes (Other)
  Sender: FDA-Public Use
  Company Number: None

PATIENT
  Sex: Male
  Weight: 97.5234 kg

DRUGS (1)
  1. EUFLEXXA N/A FERRING PHARMACEUTICALS [Suspect]
     Indication: OSTEOARTHRITIS
     Dosage: 1 INJECTION 1X PER WK / 3 WK INTRASYNOVIAL
     Route: 035
     Dates: start: 20101102, end: 20101119

REACTIONS (2)
  - ABDOMINAL PAIN UPPER [None]
  - FLATULENCE [None]
